FAERS Safety Report 7450044-0 (Version None)
Quarter: 2011Q2

REPORT INFORMATION
  Report Type: 
  Country: None (occurrence: None)
  Receive Date: 20110502
  Receipt Date: 20110331
  Transmission Date: 20111010
  Serious: Yes (Other)
  Sender: FDA-Public Use
  Company Number: US-BAYER-201034421NA

PATIENT
  Age: 46 Year
  Sex: Female
  Weight: 77.098 kg

DRUGS (3)
  1. YAZ [Suspect]
     Indication: PRODUCT USED FOR UNKNOWN INDICATION
     Route: 048
     Dates: start: 20070101, end: 20070706
  2. PRILOSEC [Concomitant]
     Dosage: 20 MG, BID
     Route: 048
  3. ZOCOR [Concomitant]
     Dosage: 20 MG, QD
     Route: 048

REACTIONS (4)
  - DEEP VEIN THROMBOSIS [None]
  - JOINT SWELLING [None]
  - PAIN IN EXTREMITY [None]
  - DYSPNOEA [None]
